FAERS Safety Report 5818384-6 (Version None)
Quarter: 2008Q3

REPORT INFORMATION
  Report Type: 
  Country: None (occurrence: None)
  Receive Date: 20080722
  Receipt Date: 20080715
  Transmission Date: 20090109
  Serious: Yes (Other)
  Sender: FDA-Public Use
  Company Number: US-BAXTER-2008BH005265

PATIENT
  Age: 2 Year
  Sex: Female
  Weight: 12 kg

DRUGS (4)
  1. HEPARIN SODIUM 1,000 UNITS AND SODIUM CHLORIDE 0.9% [Suspect]
     Indication: INTRAVENOUS CATHETER MANAGEMENT
     Route: 042
     Dates: end: 20080501
  2. THIOPENTAL SODIUM [Suspect]
     Indication: SEDATION
     Route: 042
     Dates: start: 20080430, end: 20080506
  3. MIDAZOLAM HYDROCHLORIDE [Suspect]
     Indication: SEDATION
     Dosage: DOSE UNIT:UNKNOWN
     Route: 042
     Dates: start: 20080501, end: 20080501
  4. HOSPIRA BRANDED HEPARIN [Concomitant]
     Indication: INTRAVENOUS CATHETER MANAGEMENT
     Dosage: DOSE UNIT:UNKNOWN
     Route: 042
     Dates: end: 20080501

REACTIONS (2)
  - DEEP VEIN THROMBOSIS [None]
  - DRUG CHEMICAL INCOMPATIBILITY [None]
